FAERS Safety Report 5026579-7 (Version None)
Quarter: 2006Q2

REPORT INFORMATION
  Report Type: 
  Country: None (occurrence: None)
  Receive Date: 20060615
  Receipt Date: 20060601
  Transmission Date: 20061013
  Serious: Yes (Death, Hospitalization)
  Sender: FDA-Public Use
  Company Number: NL-ROCHE-451297

PATIENT
  Age: 73 Year
  Sex: Female

DRUGS (7)
  1. CAPECITABINE [Suspect]
     Dosage: ON DAYS 1-14 DOSING AND FREQUENCY AS PER PROTOCOL REPORTED DOSE  =  2 X 2000MG
     Route: 048
     Dates: start: 20060309
  2. AVASTIN [Suspect]
     Dosage: ON DAY 1 DOSE AND FREQUENCY AS PER PROTOCOL REPORTED  =  700MG
     Route: 042
     Dates: start: 20060310
  3. OXALIPLATIN [Suspect]
     Dosage: ON DAY 1 DOSE AND FREQUENCY AS PER PROTOCOL REPORTED  =  250MG
     Route: 042
     Dates: start: 20060309
  4. ERBITUX [Suspect]
     Dosage: ON DAY 1 CYCLE 1 ONLY DOSE AND FREQUENCY AS PER PROTOCOL
     Route: 042
     Dates: start: 20060309
  5. ERBITUX [Suspect]
     Dosage: ON DAY 1 DOSE AND FREQUENCY AS PER PROTOCOL REPORTED  =  500MG
     Route: 042
     Dates: start: 20060413
  6. NSAID [Concomitant]
  7. ASCAL [Concomitant]

REACTIONS (6)
  - DEHYDRATION [None]
  - DIARRHOEA [None]
  - DUODENAL ULCER HAEMORRHAGE [None]
  - HAEMATEMESIS [None]
  - MUCOSAL INFLAMMATION [None]
  - STOMATITIS [None]
